FAERS Safety Report 24736639 (Version 3)
Quarter: 2025Q1

REPORT INFORMATION
  Report Type: Spontaneous
  Country: HR (occurrence: HR)
  Receive Date: 20241216
  Receipt Date: 20250224
  Transmission Date: 20250408
  Serious: Yes (Death, Life-Threatening, Other)
  Sender: ALEXION PHARMACEUTICALS
  Company Number: HR-AstraZeneca-CH-00767213A

PATIENT

DRUGS (1)
  1. ONDEXXYA [Suspect]
     Active Substance: ANDEXANET ALFA
     Indication: Anticoagulant therapy

REACTIONS (2)
  - Cerebrovascular accident [Fatal]
  - Infection [Fatal]
